FAERS Safety Report 8353641-3 (Version None)
Quarter: 2012Q2

REPORT INFORMATION
  Report Type: 
  Country: None (occurrence: None)
  Receive Date: 20120511
  Receipt Date: 20120507
  Transmission Date: 20120825
  Serious: Yes (Other)
  Sender: FDA-Public Use
  Company Number: US-AMGEN-USASP2012029269

PATIENT
  Age: 48 Year
  Sex: Female

DRUGS (5)
  1. TOPROL-XL [Concomitant]
  2. DIFLUCAN [Concomitant]
  3. TAXOTERE [Concomitant]
  4. NEULASTA [Suspect]
     Indication: CHEMOTHERAPY
  5. CYTOXAN [Concomitant]

REACTIONS (6)
  - TACHYCARDIA [None]
  - HYPERSENSITIVITY [None]
  - URTICARIA [None]
  - PRURITUS [None]
  - DYSPNOEA [None]
  - LIP SWELLING [None]
